FAERS Safety Report 8093034-X (Version None)
Quarter: 2012Q1

REPORT INFORMATION
  Report Type: 
  Country: None (occurrence: None)
  Receive Date: 20120128
  Receipt Date: 20111017
  Transmission Date: 20120608
  Serious: No
  Sender: FDA-Public Use
  Company Number: US-ABBOTT-10P-163-0689328-00

PATIENT
  Age: 63 Year
  Sex: Female

DRUGS (11)
  1. PENTASA [Concomitant]
     Indication: CROHN'S DISEASE
     Route: 048
  2. SYNTHROID [Concomitant]
     Indication: HYPOTHYROIDISM
     Route: 048
  3. ESTRADIOL [Concomitant]
     Indication: PRODUCT USED FOR UNKNOWN INDICATION
     Route: 048
  4. PAXIL [Concomitant]
     Indication: DEPRESSION
     Route: 048
  5. XANAX [Concomitant]
     Indication: ANXIETY
  6. MEDICATION FOR DIARRHEA [Concomitant]
     Indication: DIARRHOEA
  7. HUMIRA [Suspect]
     Indication: CROHN'S DISEASE
  8. MUCINEX DM [Concomitant]
     Indication: HYPERSENSITIVITY
     Dosage: THREE TIMES A DAY
  9. BENZONATATE [Concomitant]
     Indication: HYPERSENSITIVITY
     Dosage: THREE TIMES A DAY
  10. MEDICATION FOR ALLERGIES [Concomitant]
     Indication: HYPERSENSITIVITY
  11. GABAPENTIN [Concomitant]
     Indication: PRODUCT USED FOR UNKNOWN INDICATION

REACTIONS (6)
  - WRONG TECHNIQUE IN DRUG USAGE PROCESS [None]
  - FATIGUE [None]
  - HYPERSENSITIVITY [None]
  - INJECTION SITE PAIN [None]
  - SINUSITIS [None]
  - INJECTION SITE ERYTHEMA [None]
